FAERS Safety Report 13125977 (Version 3)
Quarter: 2019Q2

REPORT INFORMATION
  Report Type: Spontaneous
  Country: US (occurrence: US)
  Receive Date: 20170118
  Receipt Date: 20190529
  Transmission Date: 20190711
  Serious: No
  Sender: FDA-Public Use
  Company Number: US-GLAXOSMITHKLINE-US2017GSK002590

PATIENT
  Sex: Female
  Weight: 54.4 kg

DRUGS (1)
  1. HEPATITIS B VACCINE SOLUTION FOR INJECTION [Suspect]
     Active Substance: HEPATITIS B VIRUS VACCINE
     Indication: PROPHYLAXIS

REACTIONS (1)
  - Drug hypersensitivity [Not Recovered/Not Resolved]
